FAERS Safety Report 15003294 (Version 1)
Quarter: 2018Q2

REPORT INFORMATION
  Report Type: Spontaneous
  Country: DE (occurrence: DE)
  Receive Date: 20180613
  Receipt Date: 20180613
  Transmission Date: 20180711
  Serious: Yes (Hospitalization)
  Sender: FDA-Public Use
  Company Number: DE-TEVA-2018-DE-903902

PATIENT
  Age: 89 Year
  Sex: Female

DRUGS (6)
  1. TORASEMIDE [Suspect]
     Active Substance: TORSEMIDE
     Route: 065
  2. METOPROLOL. [Suspect]
     Active Substance: METOPROLOL
     Route: 065
  3. NOVAMINSULFON 500 MG [Concomitant]
     Active Substance: METAMIZOLE
  4. BROMAZANIL [Suspect]
     Active Substance: BROMAZEPAM
     Route: 065
  5. FLUOR-VIGANTOLETTEN 1000I.E. [Concomitant]
     Dosage: 1000 IE, 0-1-0-0
  6. BALDRIAN [Concomitant]
     Active Substance: VALERIAN

REACTIONS (1)
  - Fall [Unknown]

NARRATIVE: CASE EVENT DATE: 20160316
